FAERS Safety Report 9972983 (Version 2)
Quarter: 2014Q2

REPORT INFORMATION
  Report Type: Report from Study
  Country: DE (occurrence: DE)
  Receive Date: 20140306
  Receipt Date: 20140411
  Transmission Date: 20141212
  Serious: Yes (Other)
  Sender: FDA-Public Use
  Company Number: PHHY2014DE026797

PATIENT
  Age: 75 Year
  Sex: Male
  Weight: 64 kg

DRUGS (9)
  1. EXFORGE [Suspect]
     Indication: HYPERTENSION
     Dosage: 1 DF (160MG VALS/5MG AMLO), BID
  2. HYDROCHLOROTHIAZIDE [Suspect]
     Dosage: 1 DF (25MG) QD
  3. KREON [Concomitant]
     Dosage: 25000 OR 40000
  4. ASS [Concomitant]
     Dosage: 100 MG, UNK
  5. MOXONIDIN [Concomitant]
     Dosage: 1 DF (0.3MG) QD
  6. OMEPRAZOL [Concomitant]
     Dosage: 40 MG, UNK
  7. SIMVASTATIN [Concomitant]
     Dosage: 80 MG, UNK
  8. DEKRISTOL [Concomitant]
     Dosage: 2000 MG, UNK
  9. INSULIN [Concomitant]

REACTIONS (3)
  - Blood glucose fluctuation [Unknown]
  - Heart rate increased [Unknown]
  - Blood pressure fluctuation [Unknown]
